FAERS Safety Report 4375565-9 (Version None)
Quarter: 2004Q2

REPORT INFORMATION
  Report Type: 
  Country: None (occurrence: None)
  Receive Date: 20040610
  Receipt Date: 20030807
  Transmission Date: 20050107
  Serious: Yes (Death, Disabling, Other)
  Sender: FDA-Public Use
  Company Number: PHBS2003JP08608

PATIENT
  Age: 82 Year
  Sex: Male
  Weight: 61 kg

DRUGS (3)
  1. GLEEVEC [Suspect]
     Indication: GASTROINTESTINAL STROMAL TUMOUR
     Dosage: 400 MG, QD
     Route: 048
     Dates: start: 20030730, end: 20030812
  2. GLEEVEC [Suspect]
     Dosage: 300 MG/D
     Route: 048
     Dates: start: 20030813, end: 20030819
  3. MOBIC [Suspect]
     Dosage: 10 MG/D
     Route: 048
     Dates: start: 20030730, end: 20030819

REACTIONS (12)
  - ANOREXIA [None]
  - CONSTIPATION [None]
  - DEATH [None]
  - DRUG INTERACTION [None]
  - DYSPNOEA [None]
  - EXANTHEM [None]
  - FACE OEDEMA [None]
  - FATIGUE [None]
  - MALAISE [None]
  - OEDEMA PERIPHERAL [None]
  - PLEURAL EFFUSION [None]
  - WEIGHT INCREASED [None]
